FAERS Safety Report 10741093 (Version 1)
Quarter: 2015Q1

REPORT INFORMATION
  Report Type: Spontaneous
  Country: US (occurrence: US)
  Receive Date: 20150127
  Receipt Date: 20150127
  Transmission Date: 20150721
  Serious: Yes (Hospitalization)
  Sender: FDA-Public Use
  Company Number: US-MYLANLABS-2014M1001441

PATIENT
  Sex: Male

DRUGS (3)
  1. METOLAZONE. [Suspect]
     Active Substance: METOLAZONE
     Dosage: 2.5 MG, QD
     Route: 048
     Dates: start: 2014, end: 201406
  2. METOLAZONE. [Suspect]
     Active Substance: METOLAZONE
     Dosage: 2.5 MG, QD
     Route: 048
     Dates: start: 2014
  3. METOLAZONE. [Suspect]
     Active Substance: METOLAZONE
     Dosage: 2.5 MG, QD
     Route: 048
     Dates: start: 201403, end: 201403

REACTIONS (1)
  - Blood potassium decreased [Recovered/Resolved]

NARRATIVE: CASE EVENT DATE: 201403
